FAERS Safety Report 7505389-2 (Version None)
Quarter: 2011Q2

REPORT INFORMATION
  Report Type: 
  Country: None (occurrence: None)
  Receive Date: 20110519
  Receipt Date: 20110516
  Transmission Date: 20111010
  Serious: Yes (Life-Threatening)
  Sender: FDA-Public Use
  Company Number: 2011SP010755

PATIENT
  Age: 79 Year
  Sex: Male
  Weight: 75 kg

DRUGS (10)
  1. CARVEDILOL [Concomitant]
  2. LOXONIN [Concomitant]
  3. AMLODIPINE [Concomitant]
  4. METFORMIN HCL [Concomitant]
  5. RADIOTHERAPY [Concomitant]
  6. LASIX [Concomitant]
  7. TEMODAL [Suspect]
     Indication: GLIOBLASTOMA MULTIFORME
     Dosage: 140 MG;QD;PO
     Route: 048
     Dates: start: 20110120, end: 20110303
  8. TANATRIL [Concomitant]
  9. ALLOPURINOL [Concomitant]
  10. SELBEX [Concomitant]

REACTIONS (1)
  - COLITIS ISCHAEMIC [None]
